FAERS Safety Report 9728567 (Version 1)
Quarter: 2013Q4

REPORT INFORMATION
  Report Type: Spontaneous
  Country: LB (occurrence: None)
  Receive Date: 20131202
  Receipt Date: 20131202
  Transmission Date: 20140711
  Serious: Yes (Hospitalization, Other)
  Sender: FDA-Public Use
  Company Number: SYM-2013-13358

PATIENT
  Age: 68 Year
  Sex: Male

DRUGS (4)
  1. 5 FU (FLUOROURACIL) (SOLUTION FOR INFUSION) (FLUOROURACIL) [Suspect]
     Indication: COLORECTAL CANCER METASTATIC
     Route: 040
  2. AFLIBERCEPT [Suspect]
     Indication: COLORECTAL CANCER METASTATIC
     Dosage: EVERY OTHER WEEK, INTRAVENOUS DRIP
     Route: 041
  3. IRINOTECAN (IRINOTECAN) (SOLUTION FOR INFUSION) (IRINOTECAN) [Suspect]
     Indication: COLORECTAL CANCER METASTATIC
     Dosage: 180 MG/M2 , EVERY OTHER WEEK, INTRAVENOUS DRIP
     Route: 041
  4. LEUCOVORIN (FOLINIC ACID) (SOLUTION FOR INFUSION) (FOLINIC ACID) [Suspect]
     Indication: COLORECTAL CANCER METASTATIC
     Dosage: 400 MG/M2 , EVERY OTHER WEEK, INTRAVENOUS DRIP
     Route: 041

REACTIONS (1)
  - Febrile neutropenia [None]
